FAERS Safety Report 6505038-6 (Version None)
Quarter: 2009Q4

REPORT INFORMATION
  Report Type: 
  Country: None (occurrence: None)
  Receive Date: 20091201
  Receipt Date: 20090821
  Transmission Date: 20100525
  Serious: Yes (Hospitalization)
  Sender: FDA-Public Use
  Company Number: 2008-188846-NL

PATIENT
  Age: 21 Year
  Sex: Female
  Weight: 61.2 kg

DRUGS (1)
  1. NUVARING [Suspect]
     Indication: CONTRACEPTION
     Dates: start: 20050201, end: 20060524

REACTIONS (1)
  - PULMONARY EMBOLISM [None]
